FAERS Safety Report 23533541 (Version 1)
Quarter: 2024Q1

REPORT INFORMATION
  Report Type: Spontaneous
  Country: FR (occurrence: FR)
  Receive Date: 20240216
  Receipt Date: 20240216
  Transmission Date: 20240410
  Serious: Yes (Hospitalization)
  Sender: FDA-Public Use
  Company Number: None

PATIENT
  Age: 31 Year
  Sex: Male
  Weight: 68 kg

DRUGS (4)
  1. OXYCODONE HYDROCHLORIDE [Suspect]
     Active Substance: OXYCODONE HYDROCHLORIDE
     Indication: Sickle cell anaemia with crisis
     Dosage: 1DF
     Route: 048
     Dates: start: 20240106, end: 20240106
  2. MORPHINE [Suspect]
     Active Substance: MORPHINE
     Indication: Sickle cell anaemia with crisis
     Dosage: 23 MG
     Route: 042
     Dates: start: 20240106, end: 20240106
  3. HYDROXYZINE HYDROCHLORIDE [Suspect]
     Active Substance: HYDROXYZINE HYDROCHLORIDE
     Indication: Sickle cell anaemia with crisis
     Dosage: 1DF
     Route: 048
     Dates: start: 20240106, end: 20240106
  4. ACUPAN [Suspect]
     Active Substance: NEFOPAM HYDROCHLORIDE
     Indication: Sickle cell anaemia with crisis
     Dosage: 20 MG
     Route: 042
     Dates: start: 20240106, end: 20240106

REACTIONS (1)
  - Coma [Recovered/Resolved]

NARRATIVE: CASE EVENT DATE: 20240106
